FAERS Safety Report 20178542 (Version 1)
Quarter: 2021Q4

REPORT INFORMATION
  Report Type: Spontaneous
  Country: CN (occurrence: None)
  Receive Date: 20211214
  Receipt Date: 20211214
  Transmission Date: 20220303
  Serious: Yes (Other)
  Sender: FDA-Public Use
  Company Number: CN-Merck Healthcare KGaA-9286377

PATIENT
  Age: 69 Year
  Sex: Male
  Weight: 69 kg

DRUGS (1)
  1. GLUCOPHAGE [Suspect]
     Active Substance: METFORMIN HYDROCHLORIDE
     Indication: Diabetes mellitus
     Route: 048
     Dates: start: 20211203, end: 20211206

REACTIONS (2)
  - Vertigo [Recovering/Resolving]
  - Asthenia [Recovering/Resolving]

NARRATIVE: CASE EVENT DATE: 20211206
